FAERS Safety Report 8288653-1 (Version None)
Quarter: 2012Q2

REPORT INFORMATION
  Report Type: 
  Country: None (occurrence: None)
  Receive Date: 20120416
  Receipt Date: 20120305
  Transmission Date: 20120825
  Serious: Yes (Hospitalization)
  Sender: FDA-Public Use
  Company Number: US-BAXTER-2012BH006364

PATIENT
  Sex: Female

DRUGS (4)
  1. ABILIFY [Concomitant]
     Indication: DEPRESSION
  2. LEXAPRO [Concomitant]
     Indication: DEPRESSION
  3. DIANEAL PD-2 W/ DEXTROSE 1.5% [Suspect]
     Indication: PERITONEAL DIALYSIS
     Route: 033
  4. DIANEAL PD-2 W/ DEXTROSE 1.5% [Suspect]
     Route: 033

REACTIONS (1)
  - DEPRESSION [None]
